FAERS Safety Report 5898485-7 (Version None)
Quarter: 2008Q3

REPORT INFORMATION
  Report Type: 
  Country: None (occurrence: None)
  Receive Date: 20080925
  Receipt Date: 20080519
  Transmission Date: 20090109
  Serious: No
  Sender: FDA-Public Use
  Company Number: A0696314A

PATIENT
  Age: 76 Year
  Sex: Female

DRUGS (10)
  1. WELLBUTRIN XL [Suspect]
     Indication: DEPRESSION
     Dosage: 150MG PER DAY
     Route: 048
     Dates: start: 20070801, end: 20071121
  2. LEVOTHYROXINE SODIUM [Concomitant]
  3. CRESTOR [Concomitant]
  4. HYDRALAZINE HCL [Concomitant]
  5. ELMIRON [Concomitant]
  6. NITRODERM [Concomitant]
  7. DIGITEK [Concomitant]
  8. ASPIRIN [Concomitant]
  9. HYDROCHLOROTHIAZIDE [Concomitant]
  10. MICARDIS HCT [Concomitant]

REACTIONS (1)
  - ALOPECIA [None]
